FAERS Safety Report 6178805-9 (Version None)
Quarter: 2009Q2

REPORT INFORMATION
  Report Type: 
  Country: None (occurrence: None)
  Receive Date: 20090504
  Receipt Date: 20090310
  Transmission Date: 20091009
  Serious: No
  Sender: FDA-Public Use
  Company Number: GB-ALEXION-A200900205

PATIENT

DRUGS (5)
  1. SOLIRIS [Suspect]
     Indication: PAROXYSMAL NOCTURNAL HAEMOGLOBINURIA
     Route: 042
  2. PENICILLIN                         /00000901/ [Concomitant]
     Dosage: 250 MG, UNK
     Route: 048
  3. DARBEPOETIN ALFA [Concomitant]
     Route: 058
  4. FOLIC ACID [Concomitant]
     Route: 048
  5. OXYMETHOLONE [Concomitant]
     Route: 048

REACTIONS (2)
  - CHEST PAIN [None]
  - NAUSEA [None]
